FAERS Safety Report 5361832-9 (Version None)
Quarter: 2007Q2

REPORT INFORMATION
  Report Type: 
  Country: None (occurrence: None)
  Receive Date: 20070619
  Receipt Date: 20070613
  Transmission Date: 20071010
  Serious: Yes (Hospitalization, Disabling, Other)
  Sender: FDA-Public Use
  Company Number: NO-BAYER-200711382GDS

PATIENT
  Age: 78 Year
  Sex: Female

DRUGS (6)
  1. NEXAVAR [Suspect]
     Indication: RENAL CELL CARCINOMA STAGE UNSPECIFIED
     Route: 048
     Dates: start: 20060101
  2. NEXAVAR [Suspect]
     Route: 048
     Dates: start: 20061129
  3. NORVASC [Concomitant]
     Indication: DRUG USE FOR UNKNOWN INDICATION
     Route: 048
  4. COZAAR [Concomitant]
     Indication: DRUG USE FOR UNKNOWN INDICATION
     Route: 048
  5. ESTRADIOL [Concomitant]
     Indication: DRUG USE FOR UNKNOWN INDICATION
     Route: 067
  6. MECILLINAM [Concomitant]
     Indication: URINARY TRACT INFECTION
     Dates: start: 20061124, end: 20061128

REACTIONS (2)
  - CEREBRAL INFARCTION [None]
  - DERMATITIS ALLERGIC [None]
